FAERS Safety Report 9821543 (Version 1)
Quarter: 2014Q1

REPORT INFORMATION
  Report Type: Spontaneous
  Country: DE (occurrence: DE)
  Receive Date: 20140116
  Receipt Date: 20140116
  Transmission Date: 20141002
  Serious: Yes (Other)
  Sender: FDA-Public Use
  Company Number: DE-AMGEN-DEUSP2014002335

PATIENT
  Sex: 0

DRUGS (5)
  1. NEULASTA [Suspect]
     Indication: PRODUCT USED FOR UNKNOWN INDICATION
     Dosage: UNK
     Route: 065
  2. NEULASTA [Suspect]
     Dosage: UNK
     Route: 065
  3. EPIRUBICIN [Concomitant]
     Dosage: UNK
  4. PACLITAXEL [Concomitant]
     Dosage: UNK
  5. CYCLOPHOSPHAMIDE [Concomitant]
     Dosage: 2 G, UNK

REACTIONS (1)
  - Neutropenia [Unknown]
